FAERS Safety Report 11693000 (Version 1)
Quarter: 2015Q4

REPORT INFORMATION
  Report Type: Spontaneous
  Country: US (occurrence: None)
  Receive Date: 20151102
  Receipt Date: 20151102
  Transmission Date: 20160304
  Serious: No
  Sender: FDA-Public Use
  Company Number: None

PATIENT
  Age: 70 Year
  Sex: Female
  Weight: 100 kg

DRUGS (1)
  1. FIRST-VANCOMYCIN 50 (50 MG/ML) [Suspect]
     Active Substance: VANCOMYCIN HYDROCHLORIDE
     Indication: CLOSTRIDIUM DIFFICILE INFECTION
     Route: 048
     Dates: start: 20151022, end: 20151031

REACTIONS (2)
  - Product label issue [None]
  - Incorrect dose administered [None]

NARRATIVE: CASE EVENT DATE: 20151031
